FAERS Safety Report 5811389-0 (Version None)
Quarter: 2008Q3

REPORT INFORMATION
  Report Type: 
  Country: None (occurrence: None)
  Receive Date: 20080716
  Receipt Date: 20080710
  Transmission Date: 20090109
  Serious: Yes (Death, Hospitalization)
  Sender: FDA-Public Use
  Company Number: US-AVENTIS-200815706GDDC

PATIENT
  Age: 57 Year
  Sex: Female
  Weight: 83.91 kg

DRUGS (12)
  1. DOCETAXEL [Suspect]
     Indication: BREAST CANCER
     Route: 042
     Dates: start: 20080609, end: 20080609
  2. CYTOXAN [Suspect]
     Indication: BREAST CANCER
     Route: 042
     Dates: start: 20080609, end: 20080609
  3. ADRIAMYCIN PFS [Suspect]
     Indication: BREAST CANCER
     Route: 042
     Dates: start: 20080609, end: 20080609
  4. NEUPOGEN [Suspect]
     Route: 058
     Dates: start: 20080610
  5. ATENOLOL [Concomitant]
  6. BENADRYL [Concomitant]
  7. HYDROCHLOROTHIAZIDE [Concomitant]
  8. DARVOCET-N 100 [Concomitant]
  9. CLONIDINE [Concomitant]
  10. DECADRON [Concomitant]
     Route: 048
     Dates: start: 20080608, end: 20080609
  11. DECADRON [Concomitant]
     Route: 042
     Dates: start: 20080609, end: 20080609
  12. ALOXI [Concomitant]

REACTIONS (9)
  - CARDIAC FAILURE CONGESTIVE [None]
  - CARDIOMYOPATHY [None]
  - CIRCULATORY COLLAPSE [None]
  - DYSPNOEA [None]
  - HYPOXIA [None]
  - NEUTROPENIA [None]
  - PNEUMONIA [None]
  - RENAL FAILURE ACUTE [None]
  - SEPSIS [None]
